FAERS Safety Report 19349841 (Version 1)
Quarter: 2021Q2

REPORT INFORMATION
  Report Type: Spontaneous
  Country: SE (occurrence: SE)
  Receive Date: 20210531
  Receipt Date: 20210531
  Transmission Date: 20210717
  Serious: Yes (Hospitalization)
  Sender: FDA-Public Use
  Company Number: SE-TEVA-2021-SE-1916013

PATIENT
  Age: 62 Year
  Sex: Male

DRUGS (3)
  1. METOPROLOL. [Suspect]
     Active Substance: METOPROLOL
     Dosage: 450MILLIGRAM
     Dates: start: 202104, end: 202104
  2. ZOPICLONE [Suspect]
     Active Substance: ZOPICLONE
     Dosage: STRENGTHS 5 MG AND 7.5 MG:UNIT DOSE:28DOSAGEFORM
     Dates: start: 202104, end: 202104
  3. AMITRIPTYLINE [Suspect]
     Active Substance: AMITRIPTYLINE
     Dosage: UNCLEAR STRENGTH:UNIT DOSE:40DOSAGEFORM
     Dates: start: 202104, end: 202104

REACTIONS (2)
  - Toxicity to various agents [Recovered/Resolved]
  - Suicide attempt [Recovered/Resolved]

NARRATIVE: CASE EVENT DATE: 202104
